FAERS Safety Report 20197367 (Version 1)
Quarter: 2021Q4

REPORT INFORMATION
  Report Type: Other
  Country: IN (occurrence: None)
  Receive Date: 20211217
  Receipt Date: 20211217
  Transmission Date: 20220304
  Serious: Yes (Other)
  Sender: FDA-Public Use
  Company Number: IN-ROCHE-2816875

PATIENT
  Age: 46 Year
  Sex: Female

DRUGS (1)
  1. KADCYLA [Suspect]
     Active Substance: ADO-TRASTUZUMAB EMTANSINE
     Indication: Breast cancer metastatic
     Route: 042
     Dates: start: 20200227

REACTIONS (4)
  - Thrombocytopenia [Unknown]
  - Leukopenia [Unknown]
  - Epistaxis [Unknown]
  - Disease progression [Unknown]
